FAERS Safety Report 10397101 (Version 1)
Quarter: 2014Q3

REPORT INFORMATION
  Report Type: Spontaneous
  Country: US (occurrence: US)
  Receive Date: 20140820
  Receipt Date: 20140820
  Transmission Date: 20150326
  Serious: Yes (Death)
  Sender: FDA-Public Use
  Company Number: US-MALLINCKRODT-T201403168

PATIENT

DRUGS (1)
  1. SODIUM IODIDE I 131 [Suspect]
     Active Substance: SODIUM IODIDE I-131
     Indication: THYROID CANCER
     Dosage: 193 MCI, UNK
     Route: 065

REACTIONS (1)
  - Radiation pneumonitis [Fatal]
